FAERS Safety Report 20729134 (Version 1)
Quarter: 2022Q2

REPORT INFORMATION
  Report Type: Spontaneous
  Country: US (occurrence: US)
  Receive Date: 20220420
  Receipt Date: 20220420
  Transmission Date: 20220721
  Serious: No
  Sender: FDA-Public Use
  Company Number: US-NOVARTISTESTPH-NVSC2022US090494

PATIENT
  Sex: Female

DRUGS (1)
  1. XIIDRA [Suspect]
     Active Substance: LIFITEGRAST
     Indication: Dry eye
     Dosage: UNK (2X A DAY)
     Route: 065
     Dates: start: 20220413

REACTIONS (4)
  - Screaming [Unknown]
  - Abnormal sensation in eye [Unknown]
  - Eye irritation [Unknown]
  - Eye pruritus [Unknown]
